FAERS Safety Report 4952971-2 (Version None)
Quarter: 2006Q1

REPORT INFORMATION
  Report Type: 
  Country: None (occurrence: None)
  Receive Date: 20060321
  Receipt Date: 20060308
  Transmission Date: 20060701
  Serious: Yes (Other)
  Sender: FDA-Public Use
  Company Number: SP-2006-002853

PATIENT
  Age: 54 Year
  Sex: Male
  Weight: 82 kg

DRUGS (4)
  1. OLMESARTAN MEDOXOMIL [Suspect]
     Indication: HYPERTENSION
     Dosage: 20 MG QD PO
     Route: 048
  2. ATORVASTATIN CALCIUM [Concomitant]
  3. BISOPROLOL [Concomitant]
  4. OMACOR [Concomitant]

REACTIONS (1)
  - BLOOD POTASSIUM INCREASED [None]
